FAERS Safety Report 8486409-8 (Version None)
Quarter: 2012Q3

REPORT INFORMATION
  Report Type: 
  Country: None (occurrence: None)
  Receive Date: 20120703
  Receipt Date: 20120628
  Transmission Date: 20120928
  Serious: Yes (Life-Threatening)
  Sender: FDA-Public Use
  Company Number: JP-PFIZER INC-2012118399

PATIENT
  Age: 68 Year
  Sex: Female
  Weight: 48 kg

DRUGS (6)
  1. PREDNISOLONE SODIUM SUCCINATE INJ [Concomitant]
     Dosage: 40 MG/DAY
     Route: 048
     Dates: start: 20110401
  2. AZULFIDINE [Suspect]
     Indication: RHEUMATOID ARTHRITIS
     Dosage: 500 MG, 2X/DAY
     Route: 048
     Dates: start: 20110303, end: 20110329
  3. PREDNISOLONE SODIUM SUCCINATE INJ [Concomitant]
     Dosage: 50 MG/DAY TO 10 MG/DAY
     Route: 048
     Dates: start: 20110331
  4. PREDNISOLONE SODIUM SUCCINATE INJ [Concomitant]
     Dosage: 50 MG/DAY
     Route: 048
     Dates: start: 20110603
  5. MUCOSTA [Concomitant]
     Indication: PROPHYLAXIS AGAINST GASTROINTESTINAL ULCER
     Dosage: 100 MG, 3X/DAY
     Route: 048
     Dates: start: 20110303, end: 20110329
  6. PREDNISOLONE SODIUM SUCCINATE INJ [Concomitant]
     Indication: RHEUMATOID ARTHRITIS
     Dosage: UNK
     Route: 048
     Dates: start: 20110303

REACTIONS (2)
  - DERMATITIS EXFOLIATIVE [None]
  - DERMATITIS BULLOUS [None]
